FAERS Safety Report 8918888 (Version 2)
Quarter: 2012Q4

REPORT INFORMATION
  Report Type: 
  Country: US (occurrence: US)
  Receive Date: 20121121
  Receipt Date: 20121211
  Transmission Date: 20130627
  Serious: Yes (Other)
  Sender: FDA-Public Use
  Company Number: US-PFIZER INC-2012289939

PATIENT
  Sex: Female

DRUGS (4)
  1. LYRICA [Suspect]
     Dosage: 75 mg, 3x/day (Once)
     Route: 048
  2. LIDODERM [Concomitant]
     Dosage: UNK
  3. FLEXERIL [Concomitant]
     Dosage: UNK
  4. NORCO [Concomitant]
     Dosage: UNK

REACTIONS (1)
  - Neck surgery [Unknown]
